FAERS Safety Report 9287017 (Version 3)
Quarter: 2014Q1

REPORT INFORMATION
  Report Type: Spontaneous
  Country: US (occurrence: US)
  Receive Date: 20130513
  Receipt Date: 20140311
  Transmission Date: 20141002
  Serious: Yes (Hospitalization)
  Sender: FDA-Public Use
  Company Number: US-B.I. PHARMACEUTICALS,INC./RIDGEFIELD-2013-BI-13172BP

PATIENT
  Age: 85 Year
  Sex: Female
  Weight: 61.23 kg

DRUGS (10)
  1. PRADAXA [Suspect]
     Indication: ATRIAL FIBRILLATION
     Route: 065
     Dates: start: 201108, end: 20120501
  2. COUMADIN [Suspect]
     Indication: PRODUCT USED FOR UNKNOWN INDICATION
     Route: 065
     Dates: end: 20120501
  3. METOLAZONE [Concomitant]
     Dosage: 5 MG
     Route: 048
  4. FUROSEMIDE [Concomitant]
     Dosage: 40 MG
     Route: 048
  5. POTASSIUM CHLORIDE [Concomitant]
     Dosage: 20 MEQ
     Route: 048
  6. DIGOXIN [Concomitant]
     Dosage: 125 MCG
     Route: 048
  7. TOPROL XL [Concomitant]
     Dosage: 100 MG
     Route: 048
  8. ACETAMINOPHEN [Concomitant]
     Route: 048
  9. ASPIRIN [Concomitant]
     Dosage: 325 MG
     Route: 048
  10. OCCUVITE [Concomitant]
     Route: 048

REACTIONS (5)
  - Gastrointestinal haemorrhage [Unknown]
  - Toxicity to various agents [Recovered/Resolved]
  - Toxicity to various agents [Unknown]
  - Anaemia [Unknown]
  - Epistaxis [Unknown]
